FAERS Safety Report 15333761 (Version 1)
Quarter: 2018Q3

REPORT INFORMATION
  Report Type: Spontaneous
  Country: US (occurrence: US)
  Receive Date: 20180830
  Receipt Date: 20180830
  Transmission Date: 20181010
  Serious: Yes (Other)
  Sender: FDA-Public Use
  Company Number: US-SA-2018SA002586

PATIENT
  Age: 59 Year
  Sex: Female
  Weight: 104.32 kg

DRUGS (3)
  1. NEOSAR [Concomitant]
     Active Substance: CYCLOPHOSPHAMIDE
  2. TAXOTERE [Suspect]
     Active Substance: DOCETAXEL
     Indication: BREAST CANCER FEMALE
     Dosage: 164 MG,Q3W
     Route: 042
     Dates: start: 20141029, end: 20141029
  3. TAXOTERE [Suspect]
     Active Substance: DOCETAXEL
     Dosage: 164 MG,Q3W
     Route: 042
     Dates: start: 20141217, end: 20141217

REACTIONS (1)
  - Alopecia [Not Recovered/Not Resolved]

NARRATIVE: CASE EVENT DATE: 20141029
